FAERS Safety Report 6726157-5 (Version None)
Quarter: 2010Q2

REPORT INFORMATION
  Report Type: 
  Country: None (occurrence: None)
  Receive Date: 20100514
  Receipt Date: 20100505
  Transmission Date: 20101027
  Serious: Yes (Hospitalization)
  Sender: FDA-Public Use
  Company Number: DE-PFIZER INC-2010002493

PATIENT
  Age: 52 Year
  Sex: Male
  Weight: 114.5 kg

DRUGS (12)
  1. ZYVOXID [Suspect]
     Indication: PROPHYLAXIS
     Dosage: 600 MG, 2X/DAY
     Dates: start: 20091026, end: 20091122
  2. COTRIM [Suspect]
     Indication: PROPHYLAXIS URINARY TRACT INFECTION
     Dosage: 1 DF, 3X/DAY
     Route: 048
     Dates: start: 20091026, end: 20091116
  3. PROGRAF [Suspect]
     Indication: RENAL TRANSPLANT
     Dosage: 1.5 MG, 2X/DAY
     Route: 048
     Dates: start: 20091026
  4. CELLCEPT [Suspect]
     Indication: RENAL TRANSPLANT
     Dosage: 500 MG, 2X/DAY
     Route: 048
     Dates: start: 20091024, end: 20091204
  5. VALCYTE [Suspect]
     Indication: CYTOMEGALOVIRUS INFECTION
     Dosage: 900 MG, 2X/DAY
     Route: 048
     Dates: start: 20091026, end: 20091122
  6. DECORTIN-H [Concomitant]
     Indication: RENAL TRANSPLANT
     Dosage: 7.5 MG, 1X/DAY
     Route: 048
     Dates: start: 20090801
  7. PANTOZOL [Concomitant]
     Indication: PROPHYLAXIS AGAINST GASTROINTESTINAL ULCER
     Dosage: 40 MG, 2X/DAY
     Route: 048
     Dates: start: 20090801
  8. METOPROLOL [Concomitant]
     Indication: ATRIAL FIBRILLATION
     Dosage: 47.5 MG, 2X/DAY
     Dates: start: 20090701
  9. LEVOTHYROXINE SODIUM [Concomitant]
     Indication: HYPOTHYROIDISM
     Dosage: 100 UG, 1X/DAY
     Dates: start: 20080101
  10. CALCIMAGON-D3 [Concomitant]
     Indication: OSTEOPOROSIS
     Dosage: 1 DF, 2X/DAY
     Route: 048
     Dates: start: 20090801
  11. TORSEMIDE [Concomitant]
     Indication: HYPERTENSION
     Dosage: 200 MG, 2X/DAY
     Route: 048
     Dates: start: 20070101
  12. ASPIRIN [Concomitant]
     Indication: ATRIAL FIBRILLATION
     Dosage: 100 MG, 1X/DAY
     Route: 048
     Dates: start: 20090701

REACTIONS (1)
  - LEUKOPENIA [None]
